FAERS Safety Report 12390642 (Version 4)
Quarter: 2016Q2

REPORT INFORMATION
  Report Type: Report from Study
  Country: US (occurrence: US)
  Receive Date: 20160520
  Receipt Date: 20160613
  Transmission Date: 20160815
  Serious: Yes (Death, Other)
  Sender: FDA-Public Use
  Company Number: US-CELGENEUS-USA-2016052628

PATIENT
  Age: 54 Year
  Sex: Male
  Weight: 102.6 kg

DRUGS (4)
  1. VELCADE [Suspect]
     Active Substance: BORTEZOMIB
     Indication: PLASMA CELL MYELOMA
     Route: 048
     Dates: start: 20120409, end: 20120423
  2. DECADRON [Suspect]
     Active Substance: DEXAMETHASONE
     Indication: PLASMA CELL MYELOMA
     Route: 048
     Dates: start: 20120409, end: 20120423
  3. REVLIMID [Suspect]
     Active Substance: LENALIDOMIDE
     Indication: PLASMA CELL MYELOMA
     Route: 048
     Dates: start: 20110509, end: 20110811
  4. REVLIMID [Suspect]
     Active Substance: LENALIDOMIDE
     Route: 048
     Dates: start: 20120409, end: 20120423

REACTIONS (3)
  - Acute kidney injury [Unknown]
  - Plasma cell leukaemia [Fatal]
  - Pancytopenia [Unknown]

NARRATIVE: CASE EVENT DATE: 20120424
